FAERS Safety Report 11032826 (Version 1)
Quarter: 2015Q2

REPORT INFORMATION
  Report Type: Other
  Country: GB (occurrence: GB)
  Receive Date: 20150415
  Receipt Date: 20150415
  Transmission Date: 20150821
  Serious: Yes (Other)
  Sender: FDA-Public Use
  Company Number: GB-MYLANLABS-2014SP002181

PATIENT

DRUGS (7)
  1. CAPECITABINE. [Suspect]
     Active Substance: CAPECITABINE
     Dosage: UNK (1500/1000 MG, CYCLE 2)
     Route: 065
     Dates: end: 20050216
  2. VINORELBINE [Suspect]
     Active Substance: VINORELBINE\VINORELBINE TARTRATE
     Indication: BREAST CANCER METASTATIC
     Dosage: 40 MG, UNK
     Route: 042
     Dates: end: 20040915
  3. CAPECITABINE. [Suspect]
     Active Substance: CAPECITABINE
     Dosage: UNK (1500/1000 MG FROM DAY 1 TO 14 DURING 2 CYCLES)
     Dates: end: 20141109
  4. CAPECITABINE. [Suspect]
     Active Substance: CAPECITABINE
     Indication: BREAST CANCER METASTATIC
     Dosage: ONCE IN 12 HOURS (2000/1500 MG, BID (2/DAY), DAY 1 TO DAY 14, CYCLE 1)
     Route: 065
  5. VINORELBINE [Suspect]
     Active Substance: VINORELBINE\VINORELBINE TARTRATE
     Dosage: 60 MG, Q21D (60 MG, DAY 1, CYCLE 2, CYCLICAL (1/21)   )
     Route: 042
     Dates: start: 20041027
  6. VINORELBINE [Suspect]
     Active Substance: VINORELBINE\VINORELBINE TARTRATE
     Dosage: 60 MG, UNK (60 MG ON DAYS 1 AND 8 )
     Route: 048
     Dates: end: 20041109
  7. VINORELBINE [Suspect]
     Active Substance: VINORELBINE\VINORELBINE TARTRATE
     Dosage: 60 MG, Q21D (60 MG, DAY 1, CYCLE 1, CYCLICAL (1/21)
     Route: 042
     Dates: start: 20040928

REACTIONS (2)
  - Gastrointestinal toxicity [Unknown]
  - Haematotoxicity [Unknown]
